FAERS Safety Report 24531077 (Version 2)
Quarter: 2024Q4

REPORT INFORMATION
  Report Type: Spontaneous
  Country: US (occurrence: US)
  Receive Date: 20241022
  Receipt Date: 20241028
  Transmission Date: 20250115
  Serious: No
  Sender: ROCHE
  Company Number: US-ROCHE-10000109633

PATIENT
  Age: 40 Year
  Sex: Female

DRUGS (1)
  1. PERJETA [Suspect]
     Active Substance: PERTUZUMAB
     Indication: Metastases to lymph nodes
     Dosage: FORM STRENGTH: 420 MG/14ML
     Route: 042
     Dates: start: 202409

REACTIONS (4)
  - Dry mouth [Unknown]
  - Epistaxis [Unknown]
  - Cough [Unknown]
  - Off label use [Unknown]

NARRATIVE: CASE EVENT DATE: 20241008
